FAERS Safety Report 8871514 (Version 1)
Quarter: 2012Q4

REPORT INFORMATION
  Report Type: 
  Country: US (occurrence: US)
  Receive Date: 20121023
  Receipt Date: 20121023
  Transmission Date: 20130627
  Serious: Yes (Other)
  Sender: FDA-Public Use
  Company Number: CHPA2012US021902

PATIENT
  Age: 83 Year
  Sex: Female

DRUGS (2)
  1. MYOFLEX ANALGESIC CREME [Suspect]
     Indication: FIBROMYALGIA
     Dosage: Unk, BID
     Route: 061
  2. COUMADIN ^BOOTS^ [Concomitant]
     Dosage: Unk, Unk

REACTIONS (6)
  - Pain [Unknown]
  - Fall [Recovered/Resolved]
  - Muscular weakness [Recovered/Resolved]
  - Off label use [Unknown]
  - Expired drug administered [Unknown]
  - Wrong technique in drug usage process [Unknown]
